FAERS Safety Report 5987506-9 (Version None)
Quarter: 2008Q4

REPORT INFORMATION
  Report Type: 
  Country: None (occurrence: None)
  Receive Date: 20081209
  Receipt Date: 20081128
  Transmission Date: 20090506
  Serious: Yes (Other)
  Sender: FDA-Public Use
  Company Number: GB-ELI_LILLY_AND_COMPANY-GB200810005116

PATIENT
  Sex: Male
  Weight: 70 kg

DRUGS (5)
  1. CYMBALTA [Suspect]
     Indication: DEPRESSION
     Dosage: 30 MG, UNKNOWN
     Route: 048
     Dates: start: 20080404, end: 20080427
  2. CYMBALTA [Suspect]
     Dosage: 60 MG, UNKNOWN
     Route: 048
     Dates: start: 20080428, end: 20080501
  3. ZIMOVANE [Concomitant]
     Dosage: 3.75 D/F, UNKNOWN
     Route: 048
  4. IBUPROFEN TABLETS [Concomitant]
     Dosage: UNK, UNKNOWN
     Route: 065
  5. ALBUTEROL SULFATE [Concomitant]
     Dosage: UNK, UNKNOWN
     Route: 065

REACTIONS (1)
  - LIVER FUNCTION TEST ABNORMAL [None]
